FAERS Safety Report 7673347-3 (Version None)
Quarter: 2011Q3

REPORT INFORMATION
  Report Type: 
  Country: None (occurrence: None)
  Receive Date: 20110810
  Receipt Date: 20110729
  Transmission Date: 20111222
  Serious: No
  Sender: FDA-Public Use
  Company Number: US-JNJFOC-20110802143

PATIENT
  Sex: Female
  Weight: 54.43 kg

DRUGS (20)
  1. AMMONIUM LACTATE [Concomitant]
     Indication: SJOGREN'S SYNDROME
     Route: 061
  2. FLAX SEED OIL [Concomitant]
     Indication: NUTRITIONAL SUPPORT
     Route: 048
  3. BENTYL [Concomitant]
     Indication: MUSCLE RELAXANT THERAPY
     Route: 048
  4. PHENOBARBITAL TAB [Concomitant]
     Indication: CONVULSION
     Route: 048
  5. RESTASIS [Concomitant]
     Indication: SJOGREN'S SYNDROME
     Route: 047
  6. COMBIVENT [Concomitant]
     Route: 055
  7. PLAQUENIL [Concomitant]
     Indication: RAYNAUD'S PHENOMENON
     Route: 048
  8. PLAVIX [Concomitant]
     Indication: CARDIAC DISORDER
     Route: 048
  9. PRILOSEC [Concomitant]
     Indication: ULCER
     Route: 048
  10. NASONEX [Concomitant]
     Route: 045
  11. SOMA [Concomitant]
     Indication: SLEEP DISORDER
     Route: 065
  12. FENTANYL [Suspect]
     Indication: BACK PAIN
     Route: 062
     Dates: start: 20110601
  13. ADVAIR DISKUS 100/50 [Concomitant]
     Dosage: 500/50/POWDER/500/50 ONE PUFF/TWICE DAILY.
     Route: 055
  14. VICODIN [Concomitant]
     Indication: BREAKTHROUGH PAIN
     Route: 048
  15. LIPIDS [Concomitant]
     Indication: CARDIAC DISORDER
     Route: 048
  16. FENTANYL-100 [Suspect]
     Indication: BACK PAIN
     Route: 062
     Dates: start: 20110501, end: 20110601
  17. MIRALAX [Concomitant]
     Indication: CONSTIPATION
     Route: 048
  18. IMDUR [Concomitant]
     Indication: CARDIAC DISORDER
     Route: 048
  19. CALCIUM CARBONATE [Concomitant]
     Indication: MINERAL SUPPLEMENTATION
     Route: 048
  20. EVOXAC [Concomitant]
     Route: 048

REACTIONS (2)
  - PRODUCT QUALITY ISSUE [None]
  - WRONG TECHNIQUE IN DRUG USAGE PROCESS [None]
